FAERS Safety Report 6410718 (Version 2)
Quarter: 2013Q3

REPORT INFORMATION
  Report Type: Spontaneous
  Country: NL (occurrence: None)
  Receive Date: 20070830
  Receipt Date: 20130820
  Transmission Date: 20140515
  Serious: Yes (Hospitalization, Other)
  Sender: FDA-Public Use
  Company Number: 2007US-09169

PATIENT
  Age: 69 Year
  Sex: Female

DRUGS (16)
  1. VERAPAMIL (VERAPAMIL) [Suspect]
     Indication: PRODUCT USED FOR UNKNOWN INDICATION
     Route: 048
  2. SIMVASTATIN [Suspect]
     Indication: HYPERCHOLESTEROLAEMIA
     Dosage: 40 MG, QD, ORAL
     Route: 048
     Dates: start: 19970421, end: 19970516
  3. BUMETANIDE [Concomitant]
  4. DIGOXIN [Concomitant]
  5. CARBASALATE CALCIUM [Concomitant]
  6. CACIT BRUISTABLET [Concomitant]
  7. PREDNISONE [Concomitant]
  8. TEMAZEPAM [Concomitant]
  9. LOSEC [Concomitant]
  10. STANOZOLOL [Concomitant]
  11. COLECALCIFEROL [Concomitant]
  12. FUSIDIC ACID [Concomitant]
  13. E45 OINTMENT [Concomitant]
  14. PLANTAGO OVATA LEAF [Concomitant]
  15. CIPROFLOXACIN [Concomitant]
  16. DICLOFENAC [Concomitant]

REACTIONS (2)
  - Rhabdomyolysis [None]
  - Drug interaction [None]
